FAERS Safety Report 9119802 (Version 1)
Quarter: 2013Q1

REPORT INFORMATION
  Report Type: Spontaneous
  Country: JP (occurrence: JP)
  Receive Date: 20130226
  Receipt Date: 20130226
  Transmission Date: 20140127
  Serious: Yes (Other)
  Sender: FDA-Public Use
  Company Number: JP-PFIZER INC-2013069513

PATIENT
  Age: 69 Year
  Sex: Male

DRUGS (7)
  1. CISPLATIN [Suspect]
     Indication: THYMIC CANCER METASTATIC
     Dosage: 50 MG/M2, CYCLIC, ON DAY 1 (4 W)
     Route: 041
     Dates: start: 201008
  2. DOXORUBICIN HCL [Suspect]
     Indication: THYMIC CANCER METASTATIC
     Dosage: 40 MG/M2, CYCLIC, ON DAY 1 (4 W)
     Dates: start: 201008
  3. VINCRISTINE SULFATE [Suspect]
     Indication: THYMIC CANCER METASTATIC
     Dosage: 0.6 MG/M2, CYCLIC, ON DAY 3 (4 W)
     Dates: start: 201008
  4. CYCLOPHOSPHAMIDE [Suspect]
     Indication: THYMIC CANCER METASTATIC
     Dosage: 700 MG/M2, CYCLIC, ON DAY 4 (4 W)
     Dates: start: 201008
  5. ABACAVIR [Concomitant]
  6. LAMIVUDINE [Concomitant]
  7. RALTEGRAVIR [Concomitant]

REACTIONS (5)
  - Neutropenia [Unknown]
  - Febrile neutropenia [Unknown]
  - Decreased appetite [Unknown]
  - Alopecia [Unknown]
  - Hiccups [Unknown]
